FAERS Safety Report 23338418 (Version 1)
Quarter: 2023Q4

REPORT INFORMATION
  Report Type: Spontaneous
  Country: US (occurrence: US)
  Receive Date: 20231226
  Receipt Date: 20231226
  Transmission Date: 20240109
  Serious: Yes (Other)
  Sender: FDA-Public Use
  Company Number: US-TORRENT-00013058

PATIENT
  Age: 49 Year
  Sex: Female

DRUGS (2)
  1. PANTOPRAZOLE [Suspect]
     Active Substance: PANTOPRAZOLE
     Indication: Infectious mononucleosis
     Dosage: UNKNOWN
     Route: 065
  2. SUCRALFATE [Suspect]
     Active Substance: SUCRALFATE
     Indication: Infectious mononucleosis
     Dosage: UNKNOWN
     Route: 065

REACTIONS (1)
  - Wernicke^s encephalopathy [Recovered/Resolved]
